FAERS Safety Report 12328771 (Version 1)
Quarter: 2016Q2

REPORT INFORMATION
  Report Type: Spontaneous
  Country: US (occurrence: US)
  Receive Date: 20160503
  Receipt Date: 20160503
  Transmission Date: 20160815
  Serious: No
  Sender: FDA-Public Use
  Company Number: US-BEH-2015050660

PATIENT
  Sex: Female
  Weight: 73 kg

DRUGS (32)
  1. CENTRUM SILVER ULTRA WOMEN [Concomitant]
     Dosage: 1 TAB
     Route: 048
  2. ASPIRIN. [Concomitant]
     Active Substance: ASPIRIN
     Route: 048
  3. HIZENTRA [Suspect]
     Active Substance: HUMAN IMMUNOGLOBULIN G
     Indication: IMMUNODEFICIENCY COMMON VARIABLE
     Route: 058
  4. VITAMIN E [Concomitant]
     Active Substance: .ALPHA.-TOCOPHEROL
     Route: 048
  5. MEDROL [Concomitant]
     Active Substance: METHYLPREDNISOLONE
     Dosage: DOSE PAK UD
  6. LMX [Concomitant]
     Active Substance: LIDOCAINE
     Dosage: 4% PRIOR
     Route: 061
  7. FAMOTIDINE. [Concomitant]
     Active Substance: FAMOTIDINE
     Route: 048
  8. NASONEX [Concomitant]
     Active Substance: MOMETASONE FUROATE
     Dosage: EACH NOST, UD
     Route: 045
  9. LIPITOR [Concomitant]
     Active Substance: ATORVASTATIN CALCIUM
     Dosage: HS
     Route: 048
  10. ZADITOR [Concomitant]
     Active Substance: KETOTIFEN FUMARATE
     Dosage: 2GTT PRN BOTH EYES
  11. TOBRAMYCIN. [Concomitant]
     Active Substance: TOBRAMYCIN
     Dosage: BOTH EYES, 1 GTT
     Route: 047
  12. LIDOCAINE/PRILOCAINE [Concomitant]
     Dosage: 2.5% PRIOR
     Route: 061
  13. TRAMADOL. [Concomitant]
     Active Substance: TRAMADOL
     Route: 048
  14. LOMOTIL [Concomitant]
     Active Substance: ATROPINE SULFATE\DIPHENOXYLATE HYDROCHLORIDE
     Route: 048
  15. HIZENTRA [Suspect]
     Active Substance: HUMAN IMMUNOGLOBULIN G
     Indication: HYPOGAMMAGLOBULINAEMIA
     Route: 058
  16. FLEXERIL [Concomitant]
     Active Substance: CYCLOBENZAPRINE HYDROCHLORIDE
     Route: 048
  17. HIZENTRA [Suspect]
     Active Substance: HUMAN IMMUNOGLOBULIN G
     Indication: HYPOGAMMAGLOBULINAEMIA
     Route: 058
  18. AUGMENTIN [Concomitant]
     Active Substance: AMOXICILLIN\CLAVULANATE POTASSIUM
     Route: 048
  19. KEFLEX [Concomitant]
     Active Substance: CEPHALEXIN
     Dosage: UD
     Route: 048
  20. DIPHENHYDRAMINE. [Concomitant]
     Active Substance: DIPHENHYDRAMINE
     Dosage: UD
     Route: 048
  21. VITAMIN C [Concomitant]
     Active Substance: ASCORBIC ACID
     Route: 048
  22. LASIX [Concomitant]
     Active Substance: FUROSEMIDE
     Route: 048
  23. CHLOR-TRIMETON ALLERGY [Concomitant]
     Route: 048
  24. TYLENOL EX-STR [Concomitant]
     Route: 048
  25. VITAMIN D3 [Concomitant]
     Active Substance: CHOLECALCIFEROL
  26. PROTONIX [Concomitant]
     Active Substance: PANTOPRAZOLE SODIUM
     Dosage: UD
     Route: 048
  27. EVISTA [Concomitant]
     Active Substance: RALOXIFENE HYDROCHLORIDE
     Route: 048
  28. HYDROXYZINE HCL [Concomitant]
     Active Substance: HYDROXYZINE HYDROCHLORIDE
     Dosage: QPM
     Route: 048
  29. VITAMIN B-100 COMPLEX [Concomitant]
     Route: 048
  30. ACETAMINOPHEN. [Concomitant]
     Active Substance: ACETAMINOPHEN
     Dosage: UD
     Route: 048
  31. EPIPEN [Concomitant]
     Active Substance: EPINEPHRINE
     Indication: ANAPHYLACTIC REACTION
     Route: 030
  32. POTASSIUM [Concomitant]
     Active Substance: POTASSIUM
     Dosage: UD
     Route: 048

REACTIONS (3)
  - Myalgia [Unknown]
  - Swelling [Unknown]
  - Fatigue [Unknown]
